FAERS Safety Report 9286533 (Version 1)
Quarter: 2013Q2

REPORT INFORMATION
  Report Type: Spontaneous
  Country: ES (occurrence: ES)
  Receive Date: 20130513
  Receipt Date: 20130513
  Transmission Date: 20140414
  Serious: Yes (Other)
  Sender: FDA-Public Use
  Company Number: ES-ELI_LILLY_AND_COMPANY-ES201305003152

PATIENT
  Age: 41 Year
  Sex: Female

DRUGS (5)
  1. ALIMTA [Suspect]
     Indication: LUNG NEOPLASM MALIGNANT
     Dosage: EVERY 3 WEEKS
     Route: 042
     Dates: start: 20111001
  2. ENALAPRIL [Concomitant]
     Indication: HYPERTENSION
     Dosage: 10 MG, BID
     Route: 048
  3. ORFIDAL [Concomitant]
     Indication: INSOMNIA
     Dosage: 1 MG, QD
     Route: 048
  4. ACETILCISTEINA [Concomitant]
     Dosage: 600 MG, QD
     Route: 048
     Dates: start: 20130424, end: 20130501
  5. NOLOTIL [Concomitant]
     Indication: PAIN
     Dosage: 575 MG, PRN
     Route: 048

REACTIONS (2)
  - Haemoptysis [Not Recovered/Not Resolved]
  - Off label use [Unknown]
